FAERS Safety Report 9526107 (Version 3)
Quarter: 2013Q4

REPORT INFORMATION
  Report Type: Report from Study
  Country: GB (occurrence: GB)
  Receive Date: 20130916
  Receipt Date: 20131016
  Transmission Date: 20140711
  Serious: Yes (Hospitalization)
  Sender: FDA-Public Use
  Company Number: GB-AMGEN-GBRCT2012026417

PATIENT
  Age: 79 Year
  Sex: Female
  Weight: 63 kg

DRUGS (5)
  1. ETANERCEPT [Suspect]
     Indication: RHEUMATOID ARTHRITIS
     Dosage: 25 MG, 2X/WEEK
     Route: 065
     Dates: start: 20040615
  2. CO-CODAMOL [Concomitant]
     Dosage: UNK
  3. ALENDRONIC ACID [Concomitant]
     Dosage: 70 MG, WEEKLY
  4. MELOXICAM [Concomitant]
     Dosage: UNK
  5. CALCICHEW-D3 [Concomitant]
     Dosage: 1 DF, 2X/DAY

REACTIONS (2)
  - Impaired healing [Unknown]
  - Postoperative wound infection [Unknown]
